FAERS Safety Report 7278028-6 (Version None)
Quarter: 2011Q1

REPORT INFORMATION
  Report Type: 
  Country: None (occurrence: None)
  Receive Date: 20110207
  Receipt Date: 20110203
  Transmission Date: 20110831
  Serious: Yes (Death, Other)
  Sender: FDA-Public Use
  Company Number: JP-GENZYME-FLUD-1000688

PATIENT

DRUGS (6)
  1. LEVOFLOXACIN [Concomitant]
     Indication: ANTIBIOTIC PROPHYLAXIS
     Dosage: 300 MG, QD
     Route: 048
  2. ANTIFUNGALS [Concomitant]
     Indication: ANTIFUNGAL PROPHYLAXIS
     Route: 065
  3. FLUDARA [Suspect]
     Indication: BONE MARROW CONDITIONING REGIMEN
     Dosage: 30 MG/M2, QD, ON DAYS -7 TO -2
     Route: 042
  4. GRANULOCYTE COLONY STIMULATING FACTOR [Concomitant]
     Indication: PRODUCT USED FOR UNKNOWN INDICATION
     Dosage: GIVEN FROM DAY 1 UNTIL ENGRAFTMENT
     Route: 065
  5. METHOTREXATE [Concomitant]
     Indication: PROPHYLAXIS AGAINST GRAFT VERSUS HOST DISEASE
     Route: 065
  6. ACYCLOVIR [Concomitant]
     Indication: HERPES VIRUS INFECTION
     Dosage: GIVEN ON DAYS -7 TO 35
     Route: 048

REACTIONS (5)
  - FEBRILE NEUTROPENIA [None]
  - DISEASE PROGRESSION [None]
  - CHRONIC GRAFT VERSUS HOST DISEASE [None]
  - INFECTION [None]
  - ACUTE GRAFT VERSUS HOST DISEASE [None]
